FAERS Safety Report 14702387 (Version 2)
Quarter: 2018Q2

REPORT INFORMATION
  Report Type: Report from Study
  Country: GB (occurrence: GB)
  Receive Date: 20180401
  Receipt Date: 20180601
  Transmission Date: 20180711
  Serious: Yes (Other)
  Sender: FDA-Public Use
  Company Number: PHHY2018GB052023

PATIENT
  Sex: Female

DRUGS (1)
  1. COSENTYX [Suspect]
     Active Substance: SECUKINUMAB
     Indication: PSORIASIS
     Dosage: 300 MG, QMO (TWO PENS)
     Route: 058
     Dates: start: 20170814

REACTIONS (6)
  - Haemorrhage [Recovered/Resolved]
  - Psoriasis [Unknown]
  - Alopecia [Recovering/Resolving]
  - Fatigue [Unknown]
  - Herpes zoster [Unknown]
  - Anxiety [Unknown]
